FAERS Safety Report 23278940 (Version 1)
Quarter: 2023Q4

REPORT INFORMATION
  Report Type: Report from Study
  Country: AU (occurrence: None)
  Receive Date: 20231208
  Receipt Date: 20231208
  Transmission Date: 20240109
  Serious: Yes (Other)
  Sender: FDA-Public Use
  Company Number: AU-ROCHE-3470189

PATIENT
  Age: 79 Year
  Sex: Male
  Weight: 77 kg

DRUGS (7)
  1. VEMURAFENIB [Suspect]
     Active Substance: VEMURAFENIB
     Indication: Lung adenocarcinoma
     Dosage: LAST DOSE OF VEMURAFENIB WAS 960 MG
     Route: 048
     Dates: start: 20231114, end: 20231122
  2. COBIMETINIB [Suspect]
     Active Substance: COBIMETINIB
     Indication: Lung adenocarcinoma
     Dosage: LAST DOSE OF COBIMETINIB WAS 60 MG
     Route: 048
     Dates: start: 20231114, end: 20231122
  3. METFORMIN [Concomitant]
     Active Substance: METFORMIN HYDROCHLORIDE
  4. VENLAFAXINE [Concomitant]
     Active Substance: VENLAFAXINE HYDROCHLORIDE
  5. PROPRANOLOL [Concomitant]
     Active Substance: PROPRANOLOL HYDROCHLORIDE
  6. PANTOPRAZOLE [Concomitant]
     Active Substance: PANTOPRAZOLE
  7. MIRTAZAPINE [Concomitant]
     Active Substance: MIRTAZAPINE

REACTIONS (2)
  - Rash maculo-papular [Unknown]
  - Dermatitis acneiform [Unknown]

NARRATIVE: CASE EVENT DATE: 20231121
